FAERS Safety Report 8874765 (Version 1)
Quarter: 2012Q4

REPORT INFORMATION
  Report Type: 
  Country: GB (occurrence: GB)
  Receive Date: 20121031
  Receipt Date: 20121031
  Transmission Date: 20130627
  Serious: Yes (Disabling)
  Sender: FDA-Public Use
  Company Number: GB-MERCK-1210GBR012809

PATIENT
  Age: 63 Year
  Sex: Male
  Weight: 80 kg

DRUGS (4)
  1. SITAGLIPTIN PHOSPHATE [Suspect]
     Dosage: UNK
     Route: 048
     Dates: start: 20121004
  2. CLOPIDOGREL [Concomitant]
     Dosage: UNK
     Dates: start: 20120619
  3. GLICLAZIDE [Concomitant]
     Dosage: UNK
     Dates: start: 20120619, end: 20120905
  4. SIMVASTATIN [Concomitant]
     Dosage: UNK
     Dates: start: 20120619

REACTIONS (1)
  - Arthralgia [Not Recovered/Not Resolved]
